FAERS Safety Report 4354046-2 (Version None)
Quarter: 2004Q2

REPORT INFORMATION
  Report Type: 
  Country: None (occurrence: None)
  Receive Date: 20040506
  Receipt Date: 20040429
  Transmission Date: 20050107
  Serious: Yes (Other)
  Sender: FDA-Public Use
  Company Number: 200413263US

PATIENT
  Sex: Female

DRUGS (2)
  1. ALLEGRA [Suspect]
     Indication: HYPERSENSITIVITY
     Route: 048
  2. TOFRANIL [Concomitant]
     Indication: DEPRESSION
     Dosage: DOSE: NOT PROVIDED

REACTIONS (1)
  - PNEUMONIA [None]
